FAERS Safety Report 8380964-4 (Version None)
Quarter: 2012Q2

REPORT INFORMATION
  Report Type: 
  Country: None (occurrence: None)
  Receive Date: 20120523
  Receipt Date: 20120515
  Transmission Date: 20120825
  Serious: Yes (Other)
  Sender: FDA-Public Use
  Company Number: JP-VERTEX PHARMACEUTICALS INC.-AE-2012-004795

PATIENT
  Age: 50 Year
  Sex: Male

DRUGS (8)
  1. TELAVIC (TELAPREVIR) [Suspect]
     Indication: HEPATITIS C
     Route: 048
     Dates: start: 20120214, end: 20120508
  2. RIBAVIRIN [Concomitant]
     Route: 048
     Dates: start: 20120502
  3. CLOBETASOL PROPIONATE [Concomitant]
     Route: 062
  4. EPINASTINE HYDROCHLORIDE [Concomitant]
     Route: 048
  5. PEG-INTRON [Concomitant]
     Indication: HEPATITIS C
     Route: 051
     Dates: start: 20120214, end: 20120326
  6. RIBAVIRIN [Concomitant]
     Indication: HEPATITIS C
     Route: 048
     Dates: start: 20120214, end: 20120410
  7. RIBAVIRIN [Concomitant]
     Route: 048
     Dates: start: 20120411, end: 20120501
  8. PEG-INTRON [Concomitant]
     Route: 051
     Dates: start: 20120327

REACTIONS (1)
  - NEUTROPHIL COUNT DECREASED [None]
